FAERS Safety Report 11349383 (Version 1)
Quarter: 2015Q3

REPORT INFORMATION
  Report Type: Report from Study
  Country: DE (occurrence: DE)
  Receive Date: 20150807
  Receipt Date: 20150807
  Transmission Date: 20151125
  Serious: Yes (Hospitalization)
  Sender: FDA-Public Use
  Company Number: DE-ROCHE-ITM201404IM005375

PATIENT
  Age: 70 Year
  Sex: Male
  Weight: 108 kg

DRUGS (12)
  1. PIRFENIDONE [Suspect]
     Active Substance: PIRFENIDONE
     Indication: IDIOPATHIC PULMONARY FIBROSIS
     Dosage: 9 DF
     Route: 048
     Dates: start: 20130310
  2. PIRFENIDONE [Suspect]
     Active Substance: PIRFENIDONE
     Dosage: 6 DF
     Route: 048
     Dates: start: 20140320, end: 20140320
  3. PANTOZOL [Concomitant]
     Active Substance: PANTOPRAZOLE SODIUM
     Indication: PROPHYLAXIS AGAINST GASTROINTESTINAL ULCER
     Route: 065
     Dates: end: 20140415
  4. ACETYLCYSTEINE. [Concomitant]
     Active Substance: ACETYLCYSTEINE
     Indication: IDIOPATHIC PULMONARY FIBROSIS
     Route: 065
     Dates: end: 20140415
  5. PIRFENIDONE [Suspect]
     Active Substance: PIRFENIDONE
     Dosage: 6 DF
     Route: 048
     Dates: start: 20140322
  6. RAMIPRIL. [Concomitant]
     Active Substance: RAMIPRIL
     Indication: HYPERTENSION
     Route: 065
     Dates: end: 20140415
  7. TOREM [Concomitant]
     Active Substance: TORSEMIDE
     Indication: HYPERTENSION
     Route: 065
     Dates: end: 20140415
  8. BELOC-ZOK [Concomitant]
     Active Substance: METOPROLOL SUCCINATE
     Indication: HYPERTENSION
     Route: 065
     Dates: end: 20140415
  9. METFORMIN [Concomitant]
     Active Substance: METFORMIN HYDROCHLORIDE
     Indication: DIABETES MELLITUS
     Route: 065
     Dates: end: 20140415
  10. AQUAPHOR [Concomitant]
     Active Substance: PETROLATUM
     Indication: HYPERTENSION
     Route: 065
     Dates: end: 20140415
  11. DECORTIN [Concomitant]
     Active Substance: PREDNISONE
     Indication: IDIOPATHIC PULMONARY FIBROSIS
     Route: 065
     Dates: end: 20140414
  12. PIRFENIDONE [Suspect]
     Active Substance: PIRFENIDONE
     Dosage: 9 DF
     Route: 048
     Dates: start: 20140323, end: 20140414

REACTIONS (3)
  - Constipation [Recovered/Resolved]
  - Faecaloma [Recovered/Resolved]
  - Weight decreased [Not Recovered/Not Resolved]

NARRATIVE: CASE EVENT DATE: 20131212
